FAERS Safety Report 16103546 (Version 2)
Quarter: 2020Q2

REPORT INFORMATION
  Report Type: Spontaneous
  Country: US (occurrence: US)
  Receive Date: 20190322
  Receipt Date: 20200408
  Transmission Date: 20200713
  Serious: No
  Sender: FDA-Public Use
  Company Number: US-SA-2019SA073301

PATIENT
  Age: 63 Year
  Sex: Female

DRUGS (15)
  1. PROLIA [Concomitant]
     Active Substance: DENOSUMAB
  2. COPAXONE [Concomitant]
     Active Substance: GLATIRAMER ACETATE
  3. DUPIXENT [Suspect]
     Active Substance: DUPILUMAB
     Indication: ASTHMA
     Dosage: 600 MG, 1X
     Route: 058
  4. BIOTIN [Concomitant]
     Active Substance: BIOTIN
  5. COQ10 [TOCOPHERYL ACETATE;UBIDECARENONE] [Concomitant]
  6. PROBIOTIC 10 [Concomitant]
     Active Substance: DIETARY SUPPLEMENT\PROBIOTICS
  7. VITAMIN D3 [Concomitant]
     Active Substance: CHOLECALCIFEROL
  8. CALCIUM [Concomitant]
     Active Substance: CALCIUM
  9. CURCUMIN [Concomitant]
     Active Substance: CURCUMIN
  10. MAGNESIUM [Concomitant]
     Active Substance: MAGNESIUM
  11. VITAMIN C + ROSEHIP [Concomitant]
  12. SELENIUM [Concomitant]
     Active Substance: SELENIUM
  13. VITAMIN B COMPLEX [Concomitant]
     Active Substance: CYANOCOBALAMIN\DEXPANTHENOL\NIACINAMIDE\PYRIDOXINE HYDROCHLORIDE\RIBOFLAVIN 5^-PHOSPHATE SODIUM\THIAMINE HYDROCHLORIDE\VITAMIN B COMPLEX
  14. DUPIXENT [Suspect]
     Active Substance: DUPILUMAB
     Dosage: 300 MG, QOW
     Route: 058
     Dates: start: 201903
  15. FISH OIL [Concomitant]
     Active Substance: FISH OIL

REACTIONS (5)
  - Drug ineffective [Unknown]
  - Dyspnoea [Recovering/Resolving]
  - Depressed mood [Unknown]
  - Cough [Recovering/Resolving]
  - Gastroenteritis viral [Unknown]

NARRATIVE: CASE EVENT DATE: 20200313
